FAERS Safety Report 11826464 (Version 1)
Quarter: 2015Q4

REPORT INFORMATION
  Report Type: Spontaneous
  Country: JP (occurrence: JP)
  Receive Date: 20151211
  Receipt Date: 20151211
  Transmission Date: 20160305
  Serious: Yes (Hospitalization, Other)
  Sender: FDA-Public Use
  Company Number: JP-GLAXOSMITHKLINE-JP2015JPN173891

PATIENT
  Age: 56 Year
  Sex: Female

DRUGS (1)
  1. IMIGRAN SC [Suspect]
     Active Substance: SUMATRIPTAN SUCCINATE
     Route: 058

REACTIONS (7)
  - Disorientation [Recovering/Resolving]
  - Subarachnoid haemorrhage [Unknown]
  - Quadriparesis [Unknown]
  - Sensory disturbance [Unknown]
  - Headache [Recovering/Resolving]
  - Reversible cerebral vasoconstriction syndrome [Recovering/Resolving]
  - Cerebral haemorrhage [Unknown]
